FAERS Safety Report 9931798 (Version 1)
Quarter: 2014Q1

REPORT INFORMATION
  Report Type: Spontaneous
  Country: US (occurrence: None)
  Receive Date: 20140227
  Receipt Date: 20140227
  Transmission Date: 20141002
  Serious: Yes (Other)
  Sender: FDA-Public Use
  Company Number: None

PATIENT
  Age: 57 Year
  Sex: Female
  Weight: 88 kg

DRUGS (1)
  1. LYRICA 75 MG PFIZER [Suspect]
     Route: 048

REACTIONS (7)
  - Depression [None]
  - Suicidal ideation [None]
  - Gait disturbance [None]
  - Gait disturbance [None]
  - Faecal incontinence [None]
  - Urinary incontinence [None]
  - Renal haemorrhage [None]
